FAERS Safety Report 9469322 (Version 3)
Quarter: 2013Q4

REPORT INFORMATION
  Report Type: Spontaneous
  Country: US (occurrence: None)
  Receive Date: 20130815
  Receipt Date: 20131015
  Transmission Date: 20140711
  Serious: Yes (Hospitalization, Other)
  Sender: FDA-Public Use
  Company Number: ADR-2013-01366

PATIENT
  Age: 27 Year
  Sex: Male

DRUGS (3)
  1. LIORESAL [Suspect]
     Indication: MUSCLE SPASTICITY
     Dosage: DAY
  2. ANTICOAGULANTS [Suspect]
     Indication: DEEP VEIN THROMBOSIS
  3. ORAL BACLOFEN [Concomitant]

REACTIONS (6)
  - Post procedural haemorrhage [None]
  - Wound haemorrhage [None]
  - Device related infection [None]
  - Staphylococcal infection [None]
  - Urinary tract infection [None]
  - Pneumonia [None]
